FAERS Safety Report 11281017 (Version 2)
Quarter: 2015Q3

REPORT INFORMATION
  Report Type: Spontaneous
  Country: DE (occurrence: DE)
  Receive Date: 20150717
  Receipt Date: 20150723
  Transmission Date: 20151125
  Serious: Yes (Other)
  Sender: FDA-Public Use
  Company Number: DE-TEVA-552157GER

PATIENT
  Age: 35 Year
  Sex: Female
  Weight: 59.9 kg

DRUGS (1)
  1. FUNGIZID-RATIOPHARM 1% VAGINALCREME [Suspect]
     Active Substance: CLOTRIMAZOLE
     Indication: VULVOVAGINAL CANDIDIASIS
     Route: 067
     Dates: start: 20150112, end: 20150119

REACTIONS (4)
  - Device defective [Unknown]
  - Vulvovaginal injury [Recovered/Resolved]
  - Wound haemorrhage [Unknown]
  - Injury associated with device [Unknown]

NARRATIVE: CASE EVENT DATE: 20150112
